FAERS Safety Report 19982819 (Version 2)
Quarter: 2022Q3

REPORT INFORMATION
  Report Type: Spontaneous
  Country: DE (occurrence: DE)
  Receive Date: 20211022
  Receipt Date: 20220909
  Transmission Date: 20221027
  Serious: Yes (Hospitalization, Other)
  Sender: FDA-Public Use
  Company Number: DE-MERCK HEALTHCARE KGAA-9270071

PATIENT
  Age: 62 Year
  Sex: Female

DRUGS (94)
  1. MOMETASONE FUROATE [Suspect]
     Active Substance: MOMETASONE FUROATE
     Indication: Product used for unknown indication
     Dosage: JUN 2014
     Dates: start: 201406
  2. CIPROFLOXACIN [Suspect]
     Active Substance: CIPROFLOXACIN
     Indication: Product used for unknown indication
     Dosage: THERAPY START DATE: DEC-2017
     Dates: start: 201712
  3. CLIOQUINOL\FLUMETHASONE [Suspect]
     Active Substance: CLIOQUINOL\FLUMETHASONE
     Indication: Product used for unknown indication
     Dosage: THERAPY START DATE:JAN-2014
     Dates: start: 201401
  4. CLIOQUINOL\FLUMETHASONE [Suspect]
     Active Substance: CLIOQUINOL\FLUMETHASONE
     Dosage: THERAPY START DATE:JAN-2014
     Dates: start: 201401, end: 2014
  5. DOXAZOSIN [Suspect]
     Active Substance: DOXAZOSIN MESYLATE
     Indication: Product used for unknown indication
     Dosage: THERAPY START DATE: -MAY-2018
     Dates: start: 201805
  6. RASILEZ [Suspect]
     Active Substance: ALISKIREN
     Indication: Cardiac failure
     Dosage: THERAPY START DATE:-JAN-2012
     Dates: start: 201201, end: 2012
  7. RASILEZ [Suspect]
     Active Substance: ALISKIREN
     Indication: Blood pressure increased
  8. MOMETASONE [Suspect]
     Active Substance: MOMETASONE
     Indication: Product used for unknown indication
     Dosage: THERAPY START DATE:-JUN-2014
     Dates: start: 201406, end: 2014
  9. IBUPROFEN [Suspect]
     Active Substance: IBUPROFEN
     Indication: Product used for unknown indication
     Dosage: THERAPY START DATE:-APR-2014
     Dates: start: 201404, end: 2018
  10. CHLORTHALIDONE [Suspect]
     Active Substance: CHLORTHALIDONE
     Indication: Product used for unknown indication
     Dosage: MAY 2017
  11. DOXAZOSIN MESYLATE [Suspect]
     Active Substance: DOXAZOSIN MESYLATE
     Indication: Product used for unknown indication
     Dosage: THERAPY START DATE: MAY 2017
     Dates: start: 201705, end: 2017
  12. ROXITHROMYCIN [Suspect]
     Active Substance: ROXITHROMYCIN
     Indication: Product used for unknown indication
     Dosage: THERAPY START DATE:-NOV-2011
     Dates: start: 201111
  13. HYDROCORTISONE BUTYRATE [Suspect]
     Active Substance: HYDROCORTISONE BUTYRATE
     Indication: Product used for unknown indication
     Dosage: THERAPY START DATE:-JUN-2016
     Dates: start: 201606
  14. HYDROCORTISONE BUTYRATE [Suspect]
     Active Substance: HYDROCORTISONE BUTYRATE
     Dosage: UNK
     Dates: start: 201406, end: 2014
  15. CLINDAMYCIN HYDROCHLORIDE [Suspect]
     Active Substance: CLINDAMYCIN HYDROCHLORIDE
     Indication: Product used for unknown indication
     Dosage: THERAPY START DATE:01-JAN-2014
     Dates: start: 20140101
  16. CLINDAMYCIN HYDROCHLORIDE [Suspect]
     Active Substance: CLINDAMYCIN HYDROCHLORIDE
     Dosage: THERAPY START DATE:-MAR-2015
     Dates: start: 201503
  17. CLINDAMYCIN\CLOTRIMAZOLE [Suspect]
     Active Substance: CLINDAMYCIN\CLOTRIMAZOLE
     Indication: Product used for unknown indication
     Dosage: UNK
  18. FOSFOMYCIN TROMETHAMINE [Suspect]
     Active Substance: FOSFOMYCIN TROMETHAMINE
     Indication: Product used for unknown indication
     Dosage: THERAPY START DATE:-OCT-2012
     Dates: start: 201210, end: 2012
  19. LERCANIDIPINE [Suspect]
     Active Substance: LERCANIDIPINE
     Indication: Product used for unknown indication
     Dosage: THERAPY START DATE:-FEB-2017
     Dates: start: 201702
  20. NYSTATIN [Suspect]
     Active Substance: NYSTATIN
     Indication: Product used for unknown indication
     Dosage: UNK
  21. NYSTATIN [Suspect]
     Active Substance: NYSTATIN
     Dosage: THERAPY START DATE:-MAY-2018
     Dates: start: 201805, end: 2018
  22. HYDROCHLOROTHIAZIDE\VALSARTAN [Suspect]
     Active Substance: HYDROCHLOROTHIAZIDE\VALSARTAN
     Indication: Product used for unknown indication
     Dosage: APR 2012
     Dates: start: 201204
  23. AMPHOTERICIN B [Suspect]
     Active Substance: AMPHOTERICIN B
     Indication: Product used for unknown indication
     Dosage: THERAPY START DATE: -APR-2018
     Dates: start: 201804
  24. FLUMETHASONE PIVALATE [Suspect]
     Active Substance: FLUMETHASONE PIVALATE
     Indication: Product used for unknown indication
     Dosage: THERAPY START DATE:-JAN-2014
     Dates: start: 201401
  25. METAMIZOLE [Suspect]
     Active Substance: METAMIZOLE
     Indication: Product used for unknown indication
     Dosage: THERAPY START DATE:-JUN-2017
     Dates: start: 201706, end: 2017
  26. CIPROFLOXACIN HYDROCHLORIDE [Suspect]
     Active Substance: CIPROFLOXACIN HYDROCHLORIDE
     Indication: Product used for unknown indication
     Dosage: THERAPY START DATE:-NOV-2011
     Dates: start: 201111
  27. CIPROFLOXACIN HYDROCHLORIDE [Suspect]
     Active Substance: CIPROFLOXACIN HYDROCHLORIDE
     Dosage: UNK
     Dates: start: 201511, end: 2015
  28. SPIRONOLACTONE [Suspect]
     Active Substance: SPIRONOLACTONE
     Indication: Product used for unknown indication
     Dosage: THERAPY START DATE:-FEB-2017
     Dates: start: 201702, end: 2017
  29. HYDROCHLOROTHIAZIDE\VALSARTAN [Suspect]
     Active Substance: HYDROCHLOROTHIAZIDE\VALSARTAN
     Indication: Hypertension
     Dosage: THERAPY START DATE: --2012
     Dates: start: 2012
  30. CLINDAMYCIN HYDROCHLORIDE [Suspect]
     Active Substance: CLINDAMYCIN HYDROCHLORIDE
     Indication: Product used for unknown indication
     Dosage: THERAPY START DATE: -AUG-2013
     Dates: start: 201308
  31. IBUPROFEN [Suspect]
     Active Substance: IBUPROFEN
     Indication: Product used for unknown indication
     Dosage: UNK
     Dates: start: 201205, end: 2018
  32. PANTOPRAZOLE [Suspect]
     Active Substance: PANTOPRAZOLE
     Indication: Product used for unknown indication
     Dosage: THERAPY START DATE: -MAY-2017
     Dates: start: 201705
  33. CLINDAGEL [Suspect]
     Active Substance: CLINDAMYCIN PHOSPHATE
     Indication: Product used for unknown indication
     Dosage: UNK
  34. DOXAZOSIN MESYLATE [Suspect]
     Active Substance: DOXAZOSIN MESYLATE
     Indication: Product used for unknown indication
     Dosage: THERAPY START DATE:-FEB-2017
     Dates: start: 201702
  35. DOXAZOSIN MESYLATE [Suspect]
     Active Substance: DOXAZOSIN MESYLATE
     Dosage: UNK
     Dates: start: 201705, end: 2017
  36. VALSARTAN [Suspect]
     Active Substance: VALSARTAN
     Indication: Hypertension
     Dosage: START DATE: JAN 2012
     Dates: start: 201201, end: 2012
  37. DOXYCYCLINE [Suspect]
     Active Substance: DOXYCYCLINE
     Indication: Product used for unknown indication
     Dosage: THERAPY START DATE: -JUN-2016
     Dates: start: 201606, end: 2016
  38. METAMIZOLE SODIUM [Suspect]
     Active Substance: METAMIZOLE SODIUM
     Indication: Product used for unknown indication
     Dosage: JUN 2017
     Dates: start: 201706
  39. TRIMETHOPRIM [Suspect]
     Active Substance: TRIMETHOPRIM
     Indication: Product used for unknown indication
     Dosage: UNK
  40. PREDNISOLONE [Suspect]
     Active Substance: PREDNISOLONE
     Indication: Product used for unknown indication
     Dosage: THERAPY START DATE: -MAY-2015
     Dates: start: 201505, end: 2015
  41. PREDNISOLONE [Suspect]
     Active Substance: PREDNISOLONE
     Indication: Product used for unknown indication
     Dosage: UNK
  42. NEBIVOLOL [Suspect]
     Active Substance: NEBIVOLOL
     Indication: Product used for unknown indication
     Dosage: THERAPY START DATE:-FEB-2014
     Dates: start: 201402, end: 2018
  43. IBUPROFEN SODIUM [Suspect]
     Active Substance: IBUPROFEN SODIUM
     Indication: Product used for unknown indication
     Dosage: THERAPY START DATE: 20-JUL-2000
     Dates: start: 20000720
  44. IBUPROFEN SODIUM [Suspect]
     Active Substance: IBUPROFEN SODIUM
     Dosage: UNK
     Dates: start: 201807, end: 2018
  45. EUTHYROX [Suspect]
     Active Substance: LEVOTHYROXINE SODIUM
     Indication: Product used for unknown indication
     Dosage: THERAPY START DATE 20-APR-2000
     Dates: start: 20000420
  46. EUTHYROX [Suspect]
     Active Substance: LEVOTHYROXINE SODIUM
     Dosage: THERAPY START DATE:-APR-2012
     Dates: start: 201204, end: 2015
  47. CEFPODOXIME [Suspect]
     Active Substance: CEFPODOXIME
     Indication: Product used for unknown indication
     Dosage: THERAPY START DATE:-SEP-2014
     Dates: start: 201409, end: 2014
  48. CEFPODOXIME [Suspect]
     Active Substance: CEFPODOXIME
     Dosage: THERAPY START DATE: -NOV-2013
     Dates: start: 201311
  49. EFEROX [Suspect]
     Active Substance: LEVOTHYROXINE SODIUM
     Indication: Product used for unknown indication
     Dosage: THERAPY START DATE:-DEC 2012
     Dates: start: 201212, end: 2013
  50. ROXITHROMYCIN [Suspect]
     Active Substance: ROXITHROMYCIN
     Indication: Product used for unknown indication
     Dosage: UNK
  51. FLUCONAZOLE [Suspect]
     Active Substance: FLUCONAZOLE
     Indication: Product used for unknown indication
     Dosage: THERAPY START DATE: -2018
     Dates: start: 2018
  52. FLUCONAZOLE [Suspect]
     Active Substance: FLUCONAZOLE
     Dosage: UNK
     Dates: start: 201805, end: 2018
  53. CODEINE PHOSPHATE [Suspect]
     Active Substance: CODEINE PHOSPHATE
     Indication: Product used for unknown indication
     Dosage: UNK
  54. SULFAMETHOXAZOLE [Suspect]
     Active Substance: SULFAMETHOXAZOLE
     Indication: Product used for unknown indication
     Dosage: THERAPY START DATE:-OCT-2014
     Dates: start: 201410
  55. TRIMIPRAMINE [Suspect]
     Active Substance: TRIMIPRAMINE
     Dosage: UNK
     Dates: start: 201702
  56. AMPICILLIN SODIUM [Suspect]
     Active Substance: AMPICILLIN SODIUM
     Indication: Product used for unknown indication
     Dosage: UNK
     Dates: start: 201410, end: 2014
  57. MINOXIDIL [Suspect]
     Active Substance: MINOXIDIL
     Indication: Product used for unknown indication
     Dosage: UNK
     Dates: start: 201707, end: 2017
  58. CEFPODOXIME PROXETIL [Suspect]
     Active Substance: CEFPODOXIME PROXETIL
     Indication: Product used for unknown indication
     Dosage: THERAPY START DATE:-MAY-2016
     Dates: start: 201605
  59. CEFPODOXIME PROXETIL [Suspect]
     Active Substance: CEFPODOXIME PROXETIL
     Dosage: UNK
     Dates: start: 201311, end: 2013
  60. AZITHROMYCIN [Suspect]
     Active Substance: AZITHROMYCIN
     Indication: Product used for unknown indication
     Dosage: UNK
     Dates: start: 201406, end: 2014
  61. LEVOTHYROXINE SODIUM [Suspect]
     Active Substance: LEVOTHYROXINE SODIUM
     Indication: Product used for unknown indication
     Dosage: THERAPY START DATE:-APR-2012
     Dates: start: 201204
  62. CIPROFLOXACIN HYDROCHLORIDE [Suspect]
     Active Substance: CIPROFLOXACIN HYDROCHLORIDE
     Indication: Product used for unknown indication
     Dosage: UNK
  63. LEVOTHYROXINE SODIUM [Suspect]
     Active Substance: LEVOTHYROXINE SODIUM
     Indication: Product used for unknown indication
     Dosage: UNK
  64. LEVOTHYROXINE SODIUM [Suspect]
     Active Substance: LEVOTHYROXINE SODIUM
     Indication: Product used for unknown indication
     Dosage: THERAPY START DATE:-MAY-2013
     Dates: start: 201305, end: 2018
  65. VALSARTAN [Suspect]
     Active Substance: VALSARTAN
     Indication: Hypertension
     Dosage: UNK
     Dates: start: 20000120, end: 20000220
  66. VALSARTAN [Suspect]
     Active Substance: VALSARTAN
     Dosage: THERAPY START DATE: 20-APR-2000
     Dates: start: 20000420
  67. VALSARTAN [Suspect]
     Active Substance: VALSARTAN
     Dosage: UNK
     Dates: start: 20000220
  68. VALSARTAN [Suspect]
     Active Substance: VALSARTAN
     Dosage: APRIL 2012
  69. SULFAMETHOXAZOLE\TRIMETHOPRIM [Suspect]
     Active Substance: SULFAMETHOXAZOLE\TRIMETHOPRIM
     Indication: Product used for unknown indication
     Dosage: UNK
  70. PREDNISOLONE ACETATE [Suspect]
     Active Substance: PREDNISOLONE ACETATE
     Dosage: UNK
     Dates: start: 201302, end: 2013
  71. CIPROFLOXACIN [Suspect]
     Active Substance: CIPROFLOXACIN
     Dosage: UNK
     Dates: start: 201606, end: 2018
  72. SULFAMETHOXAZOLE\TRIMETHOPRIM [Suspect]
     Active Substance: SULFAMETHOXAZOLE\TRIMETHOPRIM
     Dosage: UNK
     Dates: start: 201702, end: 2018
  73. CODEINE PHOSPHATE [Suspect]
     Active Substance: CODEINE PHOSPHATE
     Dosage: UNK
     Dates: start: 201212, end: 2013
  74. HYDROCHLOROTHIAZIDE\VALSARTAN [Suspect]
     Active Substance: HYDROCHLOROTHIAZIDE\VALSARTAN
     Indication: Hypertension
     Dosage: START DATE: JAN 2012
     Dates: start: 201201, end: 2012
  75. LERCANIDIPINE HYDROCHLORIDE [Suspect]
     Active Substance: LERCANIDIPINE HYDROCHLORIDE
     Dosage: THERAPY START DATE:-FEB-2017
     Dates: start: 201702, end: 2017
  76. ROXITHROMYCIN [Suspect]
     Active Substance: ROXITHROMYCIN
     Dosage: UNK
     Dates: start: 201311, end: 2013
  77. CIPROFLOXACIN HYDROCHLORIDE [Suspect]
     Active Substance: CIPROFLOXACIN HYDROCHLORIDE
     Dosage: UNK
     Dates: start: 201712, end: 2018
  78. HYDROCHLOROTHIAZIDE [Suspect]
     Active Substance: HYDROCHLOROTHIAZIDE
     Dosage: UNK
     Dates: start: 201706, end: 2017
  79. SULFAMETHOXAZOLE\TRIMETHOPRIM [Suspect]
     Active Substance: SULFAMETHOXAZOLE\TRIMETHOPRIM
     Dosage: UNK
     Dates: start: 201410, end: 2014
  80. HYDROCHLOROTHIAZIDE\VALSARTAN [Suspect]
     Active Substance: HYDROCHLOROTHIAZIDE\VALSARTAN
     Indication: Hypertension
     Dosage: APR 2012
     Dates: start: 201204, end: 2012
  81. VALSARTAN [Suspect]
     Active Substance: VALSARTAN
     Dosage: UNK
     Dates: start: 201705, end: 2017
  82. CEFPODOXIME PROXETIL [Suspect]
     Active Substance: CEFPODOXIME PROXETIL
     Dosage: THERAPY START DATE:-MAY-2016
     Dates: start: 201605, end: 2016
  83. IBU [Suspect]
     Active Substance: IBUPROFEN
     Dosage: THERAPY START DATE:-APR-2014
     Dates: start: 201404, end: 2018
  84. CLINDAMYCIN HYDROCHLORIDE [Suspect]
     Active Substance: CLINDAMYCIN HYDROCHLORIDE
     Dosage: UNK
     Dates: start: 201503, end: 2015
  85. PANTOPRAZOLE SODIUM [Suspect]
     Active Substance: PANTOPRAZOLE SODIUM
     Dosage: UNK
     Dates: start: 201705, end: 2018
  86. AMPHOTERICIN B [Suspect]
     Active Substance: AMPHOTERICIN B
     Dosage: THERAPY START DATE: -APR-2018
     Dates: start: 201804, end: 2018
  87. HYGROTON [Suspect]
     Active Substance: CHLORTHALIDONE
     Dosage: MAY 2017
     Dates: start: 201705, end: 2017
  88. HYDROCHLOROTHIAZIDE\VALSARTAN [Suspect]
     Active Substance: HYDROCHLOROTHIAZIDE\VALSARTAN
     Indication: Hypertension
     Dosage: UNK
     Dates: start: 201602
  89. CLINDAMYCIN HYDROCHLORIDE [Suspect]
     Active Substance: CLINDAMYCIN HYDROCHLORIDE
     Dosage: UNK
     Dates: start: 201210, end: 2012
  90. CLINDAMYCIN HYDROCHLORIDE [Suspect]
     Active Substance: CLINDAMYCIN HYDROCHLORIDE
     Dosage: UNK
     Dates: start: 201401, end: 2017
  91. NEBIVOLOL [Suspect]
     Active Substance: NEBIVOLOL
     Indication: Product used for unknown indication
     Dosage: UNK
  92. CLINDAMYCIN HYDROCHLORIDE [Suspect]
     Active Substance: CLINDAMYCIN HYDROCHLORIDE
     Dosage: UNK
     Dates: start: 201308, end: 2013
  93. HYDROCHLOROTHIAZIDE\VALSARTAN [Suspect]
     Active Substance: HYDROCHLOROTHIAZIDE\VALSARTAN
     Indication: Hypertension
     Dosage: UNK
     Dates: start: 201801, end: 2018
  94. HYDROCHLOROTHIAZIDE\VALSARTAN [Suspect]
     Active Substance: HYDROCHLOROTHIAZIDE\VALSARTAN
     Indication: Hypertension
     Dosage: UNK
     Dates: start: 201205, end: 2017

REACTIONS (1)
  - Bladder transitional cell carcinoma [Recovered/Resolved]

NARRATIVE: CASE EVENT DATE: 20180301
